FAERS Safety Report 21599849 (Version 1)
Quarter: 2022Q4

REPORT INFORMATION
  Report Type: Spontaneous
  Country: DE (occurrence: DE)
  Receive Date: 20221115
  Receipt Date: 20221115
  Transmission Date: 20230113
  Serious: Yes (Hospitalization)
  Sender: FDA-Public Use
  Company Number: None

PATIENT
  Age: 64 Year
  Sex: Male
  Weight: 70 kg

DRUGS (9)
  1. RISPERDAL [Suspect]
     Active Substance: RISPERIDONE
     Indication: Screaming
     Dosage: 1-1-0
     Route: 048
     Dates: start: 20220909
  2. RISPERDAL [Suspect]
     Active Substance: RISPERIDONE
     Indication: Restlessness
     Dosage: TAPERING OFF, CURRENTLY 0.25 MG IN THE MORNING
     Route: 065
     Dates: start: 20221018
  3. PIPAMPERONE HYDROCHLORIDE [Suspect]
     Active Substance: PIPAMPERONE HYDROCHLORIDE
     Indication: Screaming
     Dosage: FOR RESTLESSNESS 1 NIGHT, WAS NOT USED
     Route: 048
  4. PIPAMPERONE HYDROCHLORIDE [Suspect]
     Active Substance: PIPAMPERONE HYDROCHLORIDE
     Indication: Restlessness
  5. SODIUM PICOSULFATE [Concomitant]
     Active Substance: SODIUM PICOSULFATE
  6. LACTULOSE [Concomitant]
     Active Substance: LACTULOSE
     Dosage: REGULAR ADMINISTRATION
     Dates: start: 20220909
  7. DIAZEPAM [Concomitant]
     Active Substance: DIAZEPAM
     Dosage: 10 TROPFEN
  8. DELTARAN [DEXIBUPROFEN] [Concomitant]
     Dosage: ADMINISTERED 2 TIMES
  9. ERGOCALCIFEROL [Concomitant]
     Active Substance: ERGOCALCIFEROL
     Dosage: REGULAR

REACTIONS (7)
  - General physical health deterioration [Not Recovered/Not Resolved]
  - Tremor [Not Recovered/Not Resolved]
  - Somnolence [Not Recovered/Not Resolved]
  - Gait disturbance [Not Recovered/Not Resolved]
  - Fall [Not Recovered/Not Resolved]
  - Hypotension [Not Recovered/Not Resolved]
  - Apathy [Not Recovered/Not Resolved]

NARRATIVE: CASE EVENT DATE: 20220928
